FAERS Safety Report 11706594 (Version 1)
Quarter: 2015Q4

REPORT INFORMATION
  Report Type: Spontaneous
  Country: US (occurrence: US)
  Receive Date: 20151104
  Receipt Date: 20151104
  Transmission Date: 20160304
  Serious: No
  Sender: FDA-Public Use
  Company Number: US-ELI_LILLY_AND_COMPANY-US201102001721

PATIENT
  Sex: Female

DRUGS (2)
  1. FORTEO [Suspect]
     Active Substance: TERIPARATIDE
     Dosage: UNK, DAILY (1/D)
  2. FORTEO [Suspect]
     Active Substance: TERIPARATIDE
     Indication: BONE LOSS
     Dosage: UNK, DAILY (1/D)

REACTIONS (7)
  - Muscular weakness [Unknown]
  - Arthralgia [Unknown]
  - Cough [Unknown]
  - Pruritus [Unknown]
  - Dysphonia [Not Recovered/Not Resolved]
  - Asthenia [Unknown]
  - Fatigue [Unknown]
